FAERS Safety Report 25673716 (Version 1)
Quarter: 2025Q3

REPORT INFORMATION
  Report Type: Spontaneous
  Country: US (occurrence: US)
  Receive Date: 20250813
  Receipt Date: 20250813
  Transmission Date: 20251020
  Serious: No
  Sender: SANOFI AVENTIS
  Company Number: US-SA-2025SA236970

PATIENT
  Sex: Female
  Weight: 113.39 kg

DRUGS (6)
  1. DUPIXENT [Suspect]
     Active Substance: DUPILUMAB
     Indication: Asthma
     Dosage: 300 MG, QOW
     Route: 058
  2. LEVONORGESTREL [Concomitant]
     Active Substance: LEVONORGESTREL
  3. VITAMINS [Concomitant]
     Active Substance: VITAMINS
  4. LOSARTAN POTASSIUM [Concomitant]
     Active Substance: LOSARTAN POTASSIUM
  5. TOPAMAX [Concomitant]
     Active Substance: TOPIRAMATE
  6. DEXAMETHASONE [Concomitant]
     Active Substance: DEXAMETHASONE

REACTIONS (2)
  - Pruritus [Unknown]
  - Therapeutic response shortened [Unknown]
